FAERS Safety Report 5036570-2 (Version None)
Quarter: 2006Q2

REPORT INFORMATION
  Report Type: 
  Country: None (occurrence: None)
  Receive Date: 20060623
  Receipt Date: 20060612
  Transmission Date: 20061013
  Serious: Yes (Disabling)
  Sender: FDA-Public Use
  Company Number: 2006073543

PATIENT
  Sex: Female

DRUGS (2)
  1. DOSTINEX [Suspect]
     Indication: PROLACTINOMA
     Dosage: 0.25 MG (0.5 MG, 1 WK), ORAL
     Route: 048
     Dates: start: 20010101
  2. ESOMEPRAZOLE           (ESOMEPRAZOLE) [Concomitant]

REACTIONS (7)
  - EXERCISE ADEQUATE [None]
  - EXERCISE TOLERANCE DECREASED [None]
  - GASTROOESOPHAGEAL REFLUX DISEASE [None]
  - IMPAIRED DRIVING ABILITY [None]
  - MUCOSAL INFLAMMATION [None]
  - MUSCLE SPASMS [None]
  - VAGINAL DISCHARGE [None]
